FAERS Safety Report 24168304 (Version 1)
Quarter: 2024Q3

REPORT INFORMATION
  Report Type: Report from Study
  Country: SA (occurrence: SA)
  Receive Date: 20240802
  Receipt Date: 20240802
  Transmission Date: 20241017
  Serious: Yes (Life-Threatening, Hospitalization, Disabling, Other)
  Sender: JOHNSON AND JOHNSON
  Company Number: SA-JNJFOC-20240784824

PATIENT

DRUGS (4)
  1. DARZALEX [Suspect]
     Active Substance: DARATUMUMAB
     Indication: Plasma cell myeloma
     Route: 042
  2. IXAZOMIB [Suspect]
     Active Substance: IXAZOMIB
     Indication: Plasma cell myeloma
     Route: 065
  3. ELOTUZUMAB [Suspect]
     Active Substance: ELOTUZUMAB
     Indication: Plasma cell myeloma
     Route: 065
  4. PANOBINOSTAT [Suspect]
     Active Substance: PANOBINOSTAT
     Indication: Plasma cell myeloma
     Route: 065

REACTIONS (9)
  - Cardiovascular disorder [Unknown]
  - Nervous system disorder [Unknown]
  - Congenital haematological disorder [Unknown]
  - Infection [Unknown]
  - Respiratory disorder [Unknown]
  - Gastrointestinal disorder [Unknown]
  - Musculoskeletal disorder [Unknown]
  - Somatoform genitourinary disorder [Unknown]
  - Neoplasm malignant [Unknown]
